FAERS Safety Report 4498888-1 (Version None)
Quarter: 2004Q4

REPORT INFORMATION
  Report Type: 
  Country: None (occurrence: None)
  Receive Date: 20041110
  Receipt Date: 20041110
  Transmission Date: 20050328
  Serious: Yes (Other)
  Sender: FDA-Public Use
  Company Number: None

PATIENT
  Age: 10 Year
  Sex: Male
  Weight: 35.3806 kg

DRUGS (3)
  1. ADVAIR DISKUS 100/50 [Suspect]
     Indication: ASTHMA
     Dosage: 1 INHALATION BID
     Route: 055
     Dates: start: 20041102, end: 20041107
  2. PULMICORT NEBS [Concomitant]
  3. XOPONEX NEBS [Concomitant]

REACTIONS (1)
  - EPISTAXIS [None]
